FAERS Safety Report 8689466 (Version 3)
Quarter: 2014Q1

REPORT INFORMATION
  Report Type: Spontaneous
  Country: US (occurrence: US)
  Receive Date: 20120727
  Receipt Date: 20140114
  Transmission Date: 20141002
  Serious: Yes (Hospitalization, Other)
  Sender: FDA-Public Use
  Company Number: US-ASTRAZENECA-2012SE50783

PATIENT
  Age: 84 Year
  Sex: Female
  Weight: 59 kg

DRUGS (5)
  1. NEXIUM [Suspect]
     Indication: DYSPEPSIA
     Route: 048
     Dates: start: 2003, end: 201312
  2. NEXIUM [Suspect]
     Indication: HIATUS HERNIA
     Route: 048
     Dates: start: 2003, end: 201312
  3. BABY ASPIRIN [Concomitant]
     Dosage: DAILY
     Route: 048
     Dates: start: 2013
  4. LOSARTAN [Concomitant]
     Indication: BLOOD PRESSURE ABNORMAL
     Route: 048
     Dates: start: 2013
  5. ATORVASTATIN [Concomitant]
     Indication: BLOOD CHOLESTEROL INCREASED
     Route: 048
     Dates: start: 2013

REACTIONS (10)
  - Hip fracture [Unknown]
  - Blood iron decreased [Unknown]
  - Upper limb fracture [Unknown]
  - Pneumonia [Unknown]
  - Gastrooesophageal reflux disease [Unknown]
  - Hernia [Unknown]
  - Gait disturbance [Unknown]
  - Throat irritation [Unknown]
  - Cough [Unknown]
  - Intentional drug misuse [Unknown]
